FAERS Safety Report 17268172 (Version 1)
Quarter: 2020Q1

REPORT INFORMATION
  Report Type: Spontaneous
  Country: US (occurrence: US)
  Receive Date: 20191221
  Receipt Date: 20191221
  Transmission Date: 20200409
  Serious: Yes (Hospitalization)
  Sender: FDA-Public Use
  Company Number: None

PATIENT
  Age: 59 Year
  Sex: Male
  Weight: 64.5 kg

DRUGS (3)
  1. ELOXATIN [Suspect]
     Active Substance: OXALIPLATIN
     Dates: end: 20190204
  2. 5-FLUOROURACIL (5-FU) [Suspect]
     Active Substance: FLUOROURACIL
     Dates: end: 20190204
  3. LEUCOVORIN CALCIUM. [Suspect]
     Active Substance: LEUCOVORIN CALCIUM
     Dates: end: 20190204

REACTIONS (17)
  - Orthostatic hypotension [None]
  - Fall [None]
  - Ascites [None]
  - Asthenia [None]
  - Decreased appetite [None]
  - Vomiting [None]
  - Thrombocytopenia [None]
  - Hepatic mass [None]
  - Staphylococcal infection [None]
  - Neutropenia [None]
  - Syncope [None]
  - Post procedural complication [None]
  - Weight decreased [None]
  - Tibia fracture [None]
  - Nausea [None]
  - Visual impairment [None]
  - Haemorrhage [None]

NARRATIVE: CASE EVENT DATE: 20190304
